FAERS Safety Report 5100733-8 (Version None)
Quarter: 2006Q3

REPORT INFORMATION
  Report Type: 
  Country: None (occurrence: None)
  Receive Date: 20060906
  Receipt Date: 20060823
  Transmission Date: 20061208
  Serious: Yes (Disabling)
  Sender: FDA-Public Use
  Company Number: 2006097796

PATIENT
  Age: 64 Year
  Sex: Male

DRUGS (2)
  1. CAMPTOSAR [Suspect]
     Indication: RECTAL CANCER METASTATIC
     Dosage: 2 DF (1 IN 1 M), INTRAVENOUS
     Route: 042
     Dates: start: 20050303, end: 20051216
  2. ERBITUX [Suspect]
     Indication: RECTAL CANCER METASTATIC
     Dosage: 1 DF (1 IN 1 WK), INTRAVENOUS
     Route: 042
     Dates: start: 20050303, end: 20051216

REACTIONS (6)
  - DISEASE PROGRESSION [None]
  - GENITAL LESION [None]
  - INFECTION [None]
  - NAIL DISORDER [None]
  - PARONYCHIA [None]
  - SKIN CHAPPED [None]
